FAERS Safety Report 24737757 (Version 1)
Quarter: 2024Q4

REPORT INFORMATION
  Report Type: Spontaneous
  Country: US (occurrence: None)
  Receive Date: 20241213
  Receipt Date: 20241213
  Transmission Date: 20250115
  Serious: Yes (Other)
  Sender: Public
  Company Number: None

PATIENT
  Age: 66 Year
  Sex: Male

DRUGS (2)
  1. VABYSMO [Suspect]
     Active Substance: FARICIMAB-SVOA
     Indication: Diabetic retinal oedema
     Dosage: OTHER FREQUENCY : ONCE;?
     Route: 031
     Dates: start: 20241111
  2. VABYSMO [Suspect]
     Active Substance: FARICIMAB-SVOA
     Indication: Diabetic retinal oedema
     Dosage: OTHER FREQUENCY : ONCE;?
     Route: 031
     Dates: start: 20241111

REACTIONS (7)
  - Pain [None]
  - Ocular hyperaemia [None]
  - Conjunctival oedema [None]
  - Iritis [None]
  - Vitritis [None]
  - Retinal occlusive vasculitis [None]
  - Intraocular pressure increased [None]

NARRATIVE: CASE EVENT DATE: 20241111
